FAERS Safety Report 25703451 (Version 3)
Quarter: 2025Q4

REPORT INFORMATION
  Report Type: Report from Study
  Country: CA (occurrence: CA)
  Receive Date: 20250820
  Receipt Date: 20251106
  Transmission Date: 20260118
  Serious: Yes (Hospitalization)
  Sender: ABBVIE
  Company Number: CA-ABBVIE-6420441

PATIENT
  Age: 78 Year
  Sex: Female

DRUGS (47)
  1. VENETOCLAX [Suspect]
     Active Substance: VENETOCLAX
     Indication: Acute myeloid leukaemia
     Route: 048
     Dates: start: 20241007, end: 20241007
  2. VENETOCLAX [Suspect]
     Active Substance: VENETOCLAX
     Indication: Acute myeloid leukaemia
     Route: 048
     Dates: start: 20241008, end: 20241008
  3. VENETOCLAX [Suspect]
     Active Substance: VENETOCLAX
     Indication: Acute myeloid leukaemia
     Route: 048
     Dates: start: 20241009, end: 20241031
  4. VENETOCLAX [Suspect]
     Active Substance: VENETOCLAX
     Indication: Acute myeloid leukaemia
     Route: 048
     Dates: start: 20241126, end: 20241202
  5. VENETOCLAX [Suspect]
     Active Substance: VENETOCLAX
     Indication: Acute myeloid leukaemia
     Route: 048
     Dates: start: 20250106, end: 20250112
  6. VENETOCLAX [Suspect]
     Active Substance: VENETOCLAX
     Indication: Acute myeloid leukaemia
     Route: 048
     Dates: start: 20250203, end: 20250209
  7. VENETOCLAX [Suspect]
     Active Substance: VENETOCLAX
     Indication: Acute myeloid leukaemia
     Route: 048
     Dates: start: 20250310, end: 20250316
  8. IRBESARTAN [Concomitant]
     Active Substance: IRBESARTAN
     Indication: Hypertension
     Route: 048
     Dates: end: 20241101
  9. IVERMECTIN [Concomitant]
     Active Substance: IVERMECTIN
     Indication: Rosacea
     Dosage: 1% CREAM TOPICAL?UNK
     Dates: end: 20250130
  10. IVERMECTIN [Concomitant]
     Active Substance: IVERMECTIN
     Indication: Rosacea
     Dosage: OTHER OD/PRN
     Route: 048
  11. MAGNESIUM [Concomitant]
     Active Substance: MAGNESIUM
     Indication: Routine health maintenance
     Dosage: OD/PRN?OTHER
     Route: 048
     Dates: end: 20241217
  12. SELENIUM [Concomitant]
     Active Substance: SELENIUM
     Indication: Routine health maintenance
     Route: 048
     Dates: end: 20241217
  13. DIETARY SUPPLEMENT\HERBALS\MILK THISTLE [Concomitant]
     Active Substance: MILK THISTLE
     Indication: Routine health maintenance
     Route: 048
     Dates: start: 20241217
  14. VITAMIN B COMPLEX [Concomitant]
     Active Substance: CYANOCOBALAMIN\DEXPANTHENOL\NIACINAMIDE\PYRIDOXINE HYDROCHLORIDE\RIBOFLAVIN 5^-PHOSPHATE SODIUM\THIA
     Indication: Routine health maintenance
     Dosage: OTHER?TAB
     Route: 048
     Dates: end: 20241217
  15. ZINC [Concomitant]
     Active Substance: ZINC
     Indication: Routine health maintenance
     Route: 048
     Dates: end: 20241217
  16. CICLESONIDE [Concomitant]
     Active Substance: CICLESONIDE
     Indication: Product used for unknown indication
     Dosage: OD/PRN?2 OTHER?SPRAY RESPIRATORY (INHALATION)
  17. PROBIOTICS NOS [Concomitant]
     Active Substance: PROBIOTICS NOS
     Indication: Routine health maintenance
     Dosage: 1 OTHER?CAPFU?OD/PRN
     Route: 048
  18. ESOMEPRAZOLE [Concomitant]
     Active Substance: ESOMEPRAZOLE
     Indication: Gastrointestinal disorder prophylaxis
     Dosage: OTHER?OD/PRN
     Route: 048
     Dates: end: 20241217
  19. COVID-19 vaccine mRNA [Concomitant]
     Indication: COVID-19
     Dosage: DOSE NO 1
  20. COVID-19 vaccine mRNA [Concomitant]
     Indication: COVID-19
     Dosage: DOSE NO 2
  21. COVID-19 vaccine mRNA [Concomitant]
     Indication: COVID-19
     Dosage: DOSE NO 2
  22. AZACITIDINE [Suspect]
     Active Substance: AZACITIDINE
     Indication: Acute myeloid leukaemia
     Route: 065
     Dates: start: 20241007, end: 20241011
  23. AZACITIDINE [Suspect]
     Active Substance: AZACITIDINE
     Indication: Acute myeloid leukaemia
     Route: 065
     Dates: start: 20241126, end: 20241130
  24. AZACITIDINE [Suspect]
     Active Substance: AZACITIDINE
     Indication: Acute myeloid leukaemia
     Route: 065
     Dates: start: 20250106, end: 20250109
  25. AZACITIDINE [Suspect]
     Active Substance: AZACITIDINE
     Indication: Acute myeloid leukaemia
     Route: 065
     Dates: start: 20250203, end: 20250206
  26. AZACITIDINE [Suspect]
     Active Substance: AZACITIDINE
     Indication: Acute myeloid leukaemia
     Route: 065
     Dates: start: 20250310, end: 20250314
  27. CANNABIDIOL [Concomitant]
     Active Substance: CANNABIDIOL
     Indication: Routine health maintenance
     Dosage: PRN?OTHER?OIL
     Route: 048
  28. FLAXSEED [Concomitant]
     Active Substance: FLAX SEED
     Indication: Routine health maintenance
     Route: 048
     Dates: end: 20241217
  29. CALCIUM ASCORBATE [Concomitant]
     Active Substance: CALCIUM ASCORBATE
     Indication: Routine health maintenance
     Route: 048
     Dates: end: 20250130
  30. ATORVASTATIN [Concomitant]
     Active Substance: ATORVASTATIN
     Indication: Hypercholesterolaemia
     Route: 048
     Dates: end: 20241217
  31. CALCIUM [Concomitant]
     Active Substance: CALCIUM
     Indication: Routine health maintenance
     Route: 048
     Dates: end: 20241217
  32. VALACYCLOVIR [Concomitant]
     Active Substance: VALACYCLOVIR HYDROCHLORIDE
     Indication: Antiviral prophylaxis
     Route: 048
     Dates: start: 20241007, end: 20250310
  33. DEXAMETHASONE [Concomitant]
     Active Substance: DEXAMETHASONE
     Indication: Prophylaxis of nausea and vomiting
     Route: 048
     Dates: start: 20241007, end: 20241007
  34. ONDANSETRON [Concomitant]
     Active Substance: ONDANSETRON
     Indication: Prophylaxis of nausea and vomiting
     Route: 048
     Dates: start: 20241007, end: 20241011
  35. DILAUDID [Concomitant]
     Active Substance: HYDROMORPHONE HYDROCHLORIDE
     Indication: Back pain
     Dosage: 1-2 MG?OTHER?Q4H-PRN
     Route: 048
     Dates: start: 20241031, end: 20241107
  36. Tazocin [Concomitant]
     Indication: Antibiotic prophylaxis
     Route: 042
     Dates: start: 20241031, end: 20241108
  37. TINZAPARIN [Concomitant]
     Active Substance: TINZAPARIN
     Indication: Thrombosis prophylaxis
     Dosage: 8000 UNITS?OD/HOLD IF PLTS {30?OTHER
     Route: 058
     Dates: start: 20241031, end: 20241111
  38. FUSIDIC ACID [Concomitant]
     Active Substance: FUSIDIC ACID
     Indication: Product used for unknown indication
     Dosage: CREAM 2 %?UNK ?TOPICAL
     Dates: start: 20241101, end: 20241105
  39. CALCIUM CHLORIDE\POTASSIUM CHLORIDE\SODIUM LACTATE [Concomitant]
     Active Substance: CALCIUM CHLORIDE\POTASSIUM CHLORIDE\SODIUM LACTATE
     Indication: Hypotension
     Route: 042
     Dates: start: 20241101, end: 20241101
  40. SENNA [Concomitant]
     Active Substance: SENNOSIDES
     Indication: Constipation
     Dosage: 2 OTHER?TABS?BID/PRN
     Dates: start: 20241102, end: 20241217
  41. VITAMIN D [Concomitant]
     Active Substance: VITAMIN D NOS
     Indication: Routine health maintenance
     Dosage: 1 OTHER?TAB
     Route: 048
     Dates: start: 20241103, end: 20241217
  42. VITAMIN B12 [Concomitant]
     Active Substance: CYANOCOBALAMIN
     Indication: Bone marrow disorder
     Route: 058
     Dates: start: 20241102, end: 20241102
  43. FOLIC ACID [Concomitant]
     Active Substance: FOLIC ACID
     Indication: Bone marrow disorder
     Route: 048
     Dates: start: 20241102
  44. VANCOMYCIN [Concomitant]
     Active Substance: VANCOMYCIN
     Indication: Antibiotic prophylaxis
     Route: 042
     Dates: start: 20241104, end: 20241104
  45. VANCOMYCIN [Concomitant]
     Active Substance: VANCOMYCIN
     Indication: Antibiotic prophylaxis
     Route: 042
     Dates: start: 20241105, end: 20241108
  46. SODIUM PHOSPHATE [Concomitant]
     Active Substance: SODIUM PHOSPHATE
     Indication: Hypophosphataemia
     Dosage: 15 OTHER MMOL
     Route: 042
     Dates: start: 20241104, end: 20241104
  47. LASIX [Concomitant]
     Active Substance: FUROSEMIDE
     Indication: Oedema peripheral
     Route: 042
     Dates: start: 20241105, end: 20241210

REACTIONS (1)
  - Pulmonary embolism [Recovered/Resolved]

NARRATIVE: CASE EVENT DATE: 20241111
